FAERS Safety Report 8220596-1 (Version None)
Quarter: 2012Q1

REPORT INFORMATION
  Report Type: 
  Country: None (occurrence: None)
  Receive Date: 20120320
  Receipt Date: 20120315
  Transmission Date: 20120608
  Serious: Yes (Other)
  Sender: FDA-Public Use
  Company Number: US-AMGEN-USASP2012016943

PATIENT
  Age: 47 Year
  Sex: Female

DRUGS (1)
  1. PROLIA [Suspect]
     Indication: PRODUCT USED FOR UNKNOWN INDICATION
     Dates: start: 20120304

REACTIONS (4)
  - EYE SWELLING [None]
  - ERYTHEMA [None]
  - SWELLING FACE [None]
  - HOT FLUSH [None]
